FAERS Safety Report 22150074 (Version 1)
Quarter: 2023Q1

REPORT INFORMATION
  Report Type: Spontaneous
  Country: CN (occurrence: CN)
  Receive Date: 20230329
  Receipt Date: 20230329
  Transmission Date: 20230417
  Serious: Yes (Other)
  Sender: FDA-Public Use
  Company Number: None

PATIENT
  Age: 67 Year
  Sex: Female
  Weight: 55 kg

DRUGS (9)
  1. CYCLOPHOSPHAMIDE [Suspect]
     Active Substance: CYCLOPHOSPHAMIDE
     Indication: Invasive ductal breast carcinoma
     Dosage: 0.9 G, QD, DILUTED WITH 0.9% SODIUM CHLORIDE (50 ML)
     Route: 041
     Dates: start: 20230223, end: 20230223
  2. CYCLOPHOSPHAMIDE [Suspect]
     Active Substance: CYCLOPHOSPHAMIDE
     Indication: Chemotherapy
  3. DEXTROSE [Suspect]
     Active Substance: DEXTROSE
     Indication: Medication dilution
     Dosage: 75 ML, QD, USED TO DILUTE PIRARUBICIN HYDROCHLORIDE (75 MG), CONCENTRATION: 5%, DOSAGE FORM: INJECTI
     Route: 041
     Dates: start: 20230223, end: 20230223
  4. PIRARUBICIN HYDROCHLORIDE [Suspect]
     Active Substance: PIRARUBICIN HYDROCHLORIDE
     Indication: Invasive ductal breast carcinoma
     Dosage: 75 MG, QD, DILUTED WITH 5% GLUCOSE (75 ML)
     Route: 041
     Dates: start: 20230223, end: 20230223
  5. PIRARUBICIN HYDROCHLORIDE [Suspect]
     Active Substance: PIRARUBICIN HYDROCHLORIDE
     Indication: Chemotherapy
  6. SODIUM CHLORIDE [Suspect]
     Active Substance: SODIUM CHLORIDE
     Indication: Invasive ductal breast carcinoma
     Dosage: 50 ML, QD, USED TO DILUTE CYCLOPHOSPHAMIDE (0.9 G)
     Route: 041
     Dates: start: 20230223, end: 20230223
  7. SODIUM CHLORIDE [Suspect]
     Active Substance: SODIUM CHLORIDE
     Indication: Chemotherapy
  8. SODIUM CHLORIDE [Suspect]
     Active Substance: SODIUM CHLORIDE
     Indication: Invasive ductal breast carcinoma
     Dosage: 75 ML, QD
     Route: 041
     Dates: start: 20230223, end: 20230223
  9. SODIUM CHLORIDE [Suspect]
     Active Substance: SODIUM CHLORIDE
     Indication: Chemotherapy

REACTIONS (2)
  - White blood cell count decreased [Recovered/Resolved]
  - Neutrophil count decreased [Recovered/Resolved]

NARRATIVE: CASE EVENT DATE: 20230307
